FAERS Safety Report 5814688-1 (Version None)
Quarter: 2008Q3

REPORT INFORMATION
  Report Type: 
  Country: None (occurrence: None)
  Receive Date: 20080718
  Receipt Date: 20080403
  Transmission Date: 20090109
  Serious: No
  Sender: FDA-Public Use
  Company Number: US-KINGPHARMUSA00001-K200800412

PATIENT

DRUGS (6)
  1. LEVOXYL [Suspect]
     Indication: THYROID HORMONE REPLACEMENT THERAPY
     Dosage: 125 MCG, QD
     Route: 048
     Dates: start: 20060101
  2. LEVOXYL [Suspect]
     Dosage: UNK, UNK
     Dates: start: 20020101
  3. ESTRADIOL, COMBINATIONS [Concomitant]
     Indication: HORMONE REPLACEMENT THERAPY
     Dosage: UNK, TIW
     Dates: start: 19990101
  4. ACTONEL [Concomitant]
     Indication: DRUG USE FOR UNKNOWN INDICATION
     Dosage: UNK, UNK
  5. NORTRIPTYLINE HCL [Concomitant]
     Indication: DEPRESSION
  6. ALPRAZOLAM [Concomitant]
     Indication: DEPRESSION
     Dosage: UNK, UNK

REACTIONS (3)
  - DRY SKIN [None]
  - DYSPHONIA [None]
  - LETHARGY [None]
